FAERS Safety Report 9581384 (Version 2)
Quarter: 2013Q4

REPORT INFORMATION
  Report Type: Spontaneous
  Country: AT (occurrence: AT)
  Receive Date: 20131002
  Receipt Date: 20131002
  Transmission Date: 20140711
  Serious: Yes (Other)
  Sender: FDA-Public Use
  Company Number: AT-B.I. PHARMACEUTICALS,INC./RIDGEFIELD-2013-BI-28701AP

PATIENT
  Sex: Male
  Weight: 78 kg

DRUGS (8)
  1. PRADAXA [Suspect]
     Indication: TACHYCARDIA
     Dosage: 300 MG
     Dates: start: 20130823
  2. PRADAXA [Suspect]
     Indication: ATRIAL FIBRILLATION
  3. PRADAXA [Suspect]
     Indication: SINUS RHYTHM
  4. CONCOR 2,5 [Concomitant]
     Dosage: DOSE OF ONE APPLICATION UNIT- 2,5
  5. LESCOL 40 [Concomitant]
     Dosage: 40 NR
  6. DUSODRIL RET 200 [Concomitant]
     Dosage: 400 NR
  7. ALLOSTAD 300 [Concomitant]
     Dosage: 300 NR
  8. RAMIPRIL 5 [Concomitant]

REACTIONS (2)
  - Embolic stroke [Unknown]
  - Drug ineffective [Unknown]
